FAERS Safety Report 8255747 (Version 3)
Quarter: 2013Q3

REPORT INFORMATION
  Report Type: Spontaneous
  Country: US (occurrence: US)
  Receive Date: 20111118
  Receipt Date: 20130823
  Transmission Date: 20140515
  Serious: Yes (Other)
  Sender: FDA-Public Use
  Company Number: US-ASTRAZENECA-2011SE56227

PATIENT
  Age: 59 Year
  Sex: Female
  Weight: 68 kg

DRUGS (4)
  1. NEXIUM [Suspect]
     Indication: GASTROOESOPHAGEAL REFLUX DISEASE
     Route: 048
     Dates: end: 20130715
  2. ABILIFY [Concomitant]
     Indication: DEPRESSION
  3. EFFEXOR [Concomitant]
     Indication: MENTAL DISORDER
  4. VALIUM [Concomitant]
     Indication: DEPRESSION

REACTIONS (9)
  - Breast cancer [Unknown]
  - Depression suicidal [Unknown]
  - Depression [Unknown]
  - Adverse event [Unknown]
  - Gastric disorder [Unknown]
  - Sleep apnoea syndrome [Unknown]
  - Malaise [Unknown]
  - Abdominal discomfort [Unknown]
  - Intentional drug misuse [Unknown]
